FAERS Safety Report 9793393 (Version 1)
Quarter: 2014Q1

REPORT INFORMATION
  Report Type: Spontaneous
  Country: US (occurrence: US)
  Receive Date: 20140102
  Receipt Date: 20140102
  Transmission Date: 20141002
  Serious: Yes (Hospitalization)
  Sender: FDA-Public Use
  Company Number: US-009507513-1312USA011849

PATIENT
  Age: 54 Year
  Sex: Female

DRUGS (1)
  1. PEGINTRON [Suspect]
     Indication: FIBROSIS
     Dosage: UNK
     Dates: start: 2003

REACTIONS (4)
  - Hypotension [Not Recovered/Not Resolved]
  - Dyspnoea [Not Recovered/Not Resolved]
  - Fatigue [Not Recovered/Not Resolved]
  - Off label use [Unknown]
